FAERS Safety Report 5432070-6 (Version None)
Quarter: 2007Q3

REPORT INFORMATION
  Report Type: 
  Country: None (occurrence: None)
  Receive Date: 20070830
  Receipt Date: 20070829
  Transmission Date: 20080115
  Serious: No
  Sender: FDA-Public Use
  Company Number: US-BOEHRINGER INGELHEIM PHARMACEUTICALS, INC.-2007-BP-17486BP

PATIENT
  Age: 66 Year
  Sex: Male

DRUGS (1)
  1. MICARDIS [Suspect]

REACTIONS (4)
  - DIZZINESS [None]
  - FEELING COLD [None]
  - HEART RATE DECREASED [None]
  - MYALGIA [None]
